FAERS Safety Report 9681024 (Version 1)
Quarter: 2013Q4

REPORT INFORMATION
  Report Type: Spontaneous
  Country: US (occurrence: US)
  Receive Date: 20131111
  Receipt Date: 20131111
  Transmission Date: 20140711
  Serious: Yes (Other)
  Sender: FDA-Public Use
  Company Number: US-TARO PHARMACEUTICALS U.S.A., INC-2013SUN04970

PATIENT
  Age: 67 Year
  Sex: Male

DRUGS (7)
  1. WARFARIN [Suspect]
     Indication: ANTICOAGULANT THERAPY
     Dosage: UNK
     Route: 065
  2. WARFARIN [Suspect]
     Dosage: UNK
     Route: 065
  3. DABIGATRAN [Suspect]
     Indication: ANTICOAGULANT THERAPY
     Dosage: 150 MG, BID
     Route: 065
  4. ASPIRIN [Suspect]
     Indication: ANTICOAGULANT THERAPY
     Dosage: 81 MG, DAILY
     Route: 065
  5. SOTALOL [Concomitant]
     Dosage: UNK
     Route: 065
  6. OMEPRAZOLE [Concomitant]
     Route: 065
  7. LISINOPRIL [Concomitant]
     Route: 065

REACTIONS (3)
  - Renal failure acute [Recovered/Resolved]
  - Renal tubular necrosis [Recovering/Resolving]
  - Haematuria [Recovered/Resolved]
